FAERS Safety Report 8474618-3 (Version None)
Quarter: 2012Q2

REPORT INFORMATION
  Report Type: 
  Country: None (occurrence: None)
  Receive Date: 20120622
  Receipt Date: 20120616
  Transmission Date: 20120825
  Serious: Yes (Other)
  Sender: FDA-Public Use
  Company Number: AUR-APL-2012-02646

PATIENT
  Sex: Female

DRUGS (2)
  1. SIMVASTATIN [Suspect]
     Indication: LOW DENSITY LIPOPROTEIN INCREASED
     Dosage: ORAL
     Route: 048
  2. FLUVASTATIN SODIUM [Suspect]
     Indication: LOW DENSITY LIPOPROTEIN INCREASED
     Dosage: ORAL
     Route: 048
     Dates: start: 20100701, end: 20111201

REACTIONS (4)
  - SKIN BURNING SENSATION [None]
  - VERY LOW DENSITY LIPOPROTEIN INCREASED [None]
  - MYOPATHY [None]
  - ABDOMINAL DISCOMFORT [None]
